FAERS Safety Report 8903694 (Version 1)
Quarter: 2012Q4

REPORT INFORMATION
  Report Type: 
  Country: US (occurrence: US)
  Receive Date: 20121113
  Receipt Date: 20121113
  Transmission Date: 20130627
  Serious: Yes (Other)
  Sender: FDA-Public Use
  Company Number: US-PFIZER INC-2012281570

PATIENT
  Sex: Male

DRUGS (1)
  1. LYRICA [Suspect]
     Dosage: UNK, 3x/day
     Dates: end: 20121108

REACTIONS (3)
  - Angioedema [Unknown]
  - Lip swelling [Unknown]
  - Circumstance or information capable of leading to medication error [Unknown]
